FAERS Safety Report 11189503 (Version 2)
Quarter: 2016Q2

REPORT INFORMATION
  Report Type: Spontaneous
  Country: US (occurrence: US)
  Receive Date: 20150615
  Receipt Date: 20160602
  Transmission Date: 20160815
  Serious: Yes (Hospitalization)
  Sender: FDA-Public Use
  Company Number: US-DSJP-DSU-2014-114080

PATIENT
  Age: 66 Year
  Sex: Male
  Weight: 101.59 kg

DRUGS (14)
  1. BENICAR [Suspect]
     Active Substance: OLMESARTAN MEDOXOMIL
     Dosage: 20 MG, UNK
     Dates: start: 200901, end: 201108
  2. BENICAR [Suspect]
     Active Substance: OLMESARTAN MEDOXOMIL
     Indication: HYPERTENSION
     Dosage: 20 MG, QD
     Route: 048
     Dates: start: 20090126, end: 2013
  3. BENICAR [Suspect]
     Active Substance: OLMESARTAN MEDOXOMIL
     Dosage: UNK UNK, QD
     Route: 048
  4. NYSTATIN. [Concomitant]
     Active Substance: NYSTATIN
     Indication: PRODUCT USED FOR UNKNOWN INDICATION
     Dosage: UNK
  5. ANUCORT-HC [Concomitant]
     Active Substance: HYDROCORTISONE ACETATE
     Indication: PRODUCT USED FOR UNKNOWN INDICATION
     Dosage: 1 RECTALLY, BID
     Route: 054
  6. CIPROFLOXACIN. [Concomitant]
     Active Substance: CIPROFLOXACIN
     Indication: PRODUCT USED FOR UNKNOWN INDICATION
     Dosage: 500 MG, ONCE EVERY 12HR
     Route: 048
  7. CASTOR OIL. [Concomitant]
     Active Substance: CASTOR OIL
     Indication: PRODUCT USED FOR UNKNOWN INDICATION
     Dosage: UNK
  8. PANTOPRAZOLE                       /01263204/ [Concomitant]
     Active Substance: PANTOPRAZOLE SODIUM
     Indication: PRODUCT USED FOR UNKNOWN INDICATION
     Dosage: UNK
  9. DESMOPRESSIN ACETATE. [Concomitant]
     Active Substance: DESMOPRESSIN ACETATE
     Indication: PRODUCT USED FOR UNKNOWN INDICATION
     Dosage: UNK
  10. MAGNESIUM CITRATE. [Concomitant]
     Active Substance: MAGNESIUM CITRATE
     Indication: PRODUCT USED FOR UNKNOWN INDICATION
     Dosage: UNK
  11. BENICAR [Suspect]
     Active Substance: OLMESARTAN MEDOXOMIL
     Dosage: 20 MG, UNK
     Dates: start: 200812, end: 201108
  12. DIPHENOXYLATE                      /00172302/ [Concomitant]
     Indication: PRODUCT USED FOR UNKNOWN INDICATION
     Dosage: 2.5- 0.025MG, UNK
  13. BENICAR [Suspect]
     Active Substance: OLMESARTAN MEDOXOMIL
     Dosage: 20 MG, UNK
     Dates: start: 201306, end: 201307
  14. BENICAR [Suspect]
     Active Substance: OLMESARTAN MEDOXOMIL
     Dosage: 20 MG, QD
     Route: 048
     Dates: start: 201201, end: 201307

REACTIONS (22)
  - Hepatic function abnormal [Unknown]
  - Alanine aminotransferase increased [Unknown]
  - Abasia [Unknown]
  - Dizziness [Recovering/Resolving]
  - Diverticulum intestinal [Unknown]
  - Constipation [Unknown]
  - Oedema [Unknown]
  - Depression [Not Recovered/Not Resolved]
  - Acute kidney injury [Unknown]
  - Anal sphincter atony [Not Recovered/Not Resolved]
  - Hypotension [Unknown]
  - Tooth extraction [Unknown]
  - Malabsorption [Recovering/Resolving]
  - Hepatic steatosis [Unknown]
  - Diplopia [Unknown]
  - Bladder diverticulum [Unknown]
  - Haemorrhoids [Unknown]
  - Palpitations [Unknown]
  - Flank pain [Unknown]
  - Muscle spasms [Unknown]
  - Feeling abnormal [Unknown]
  - Muscle mass [Not Recovered/Not Resolved]

NARRATIVE: CASE EVENT DATE: 2013
